FAERS Safety Report 6360872-0 (Version None)
Quarter: 2009Q3

REPORT INFORMATION
  Report Type: 
  Country: None (occurrence: None)
  Receive Date: 20090918
  Receipt Date: 20090909
  Transmission Date: 20100115
  Serious: Yes (Other)
  Sender: FDA-Public Use
  Company Number: IL-ABBOTT-09P-082-0591481-00

PATIENT
  Sex: Male
  Weight: 70 kg

DRUGS (2)
  1. HUMIRA [Suspect]
     Indication: CROHN'S DISEASE
     Route: 058
     Dates: start: 20090701
  2. HUMIRA [Suspect]
     Route: 058
     Dates: end: 20090801

REACTIONS (2)
  - EPILEPSY [None]
  - HEADACHE [None]
